FAERS Safety Report 23926388 (Version 1)
Quarter: 2024Q2

REPORT INFORMATION
  Report Type: Spontaneous
  Country: TW (occurrence: TW)
  Receive Date: 20240531
  Receipt Date: 20240531
  Transmission Date: 20240716
  Serious: Yes (Other)
  Sender: FDA-Public Use
  Company Number: TW-002147023-NVSC2024TW111171

PATIENT

DRUGS (5)
  1. RUXOLITINIB [Suspect]
     Active Substance: RUXOLITINIB
     Indication: Thrombocytopenia
     Dosage: UNK
     Route: 048
     Dates: start: 202202, end: 202302
  2. RUXOLITINIB [Suspect]
     Active Substance: RUXOLITINIB
     Indication: Leukocytosis
  3. RUXOLITINIB [Suspect]
     Active Substance: RUXOLITINIB
     Indication: Fatigue
  4. RUXOLITINIB [Suspect]
     Active Substance: RUXOLITINIB
     Indication: Weight decreased
  5. HYDROXYUREA [Concomitant]
     Active Substance: HYDROXYUREA
     Indication: Product used for unknown indication
     Dosage: UNK
     Route: 065

REACTIONS (2)
  - Cellulitis [Recovering/Resolving]
  - Product use in unapproved indication [Unknown]
